FAERS Safety Report 8969110 (Version 1)
Quarter: 2012Q4

REPORT INFORMATION
  Report Type: 
  Country: CA (occurrence: CA)
  Receive Date: 20121218
  Receipt Date: 20121218
  Transmission Date: 20130627
  Serious: Yes (Other)
  Sender: FDA-Public Use
  Company Number: CA-SP-2012-12030

PATIENT
  Age: 68 Year
  Sex: Male

DRUGS (1)
  1. BCG THERAPEUTICS [Suspect]
     Indication: BLADDER CANCER
     Dosage: (BCG) 1-8 x 108 colony forming units weekly for six sessions
     Route: 043

REACTIONS (10)
  - Aortic aneurysm [Unknown]
  - Bovine tuberculosis [Unknown]
  - Bovine tuberculosis [Unknown]
  - Psoas abscess [Unknown]
  - Abdominal pain [Unknown]
  - Pyrexia [Unknown]
  - Night sweats [Unknown]
  - Renal failure chronic [Unknown]
  - Renal failure acute [Unknown]
  - Hypotension [Unknown]
